FAERS Safety Report 8388525-8 (Version None)
Quarter: 2012Q2

REPORT INFORMATION
  Report Type: 
  Country: None (occurrence: None)
  Receive Date: 20120525
  Receipt Date: 20120322
  Transmission Date: 20120825
  Serious: Yes (Other)
  Sender: FDA-Public Use
  Company Number: CHPA2012US010701

PATIENT
  Age: 55 Year
  Sex: Female

DRUGS (3)
  1. EXCEDRIN BACK \+ BODY CAPLETS [Suspect]
     Indication: BACK PAIN
     Dosage: 2 DF, BID
     Route: 048
  2. MINERAL TAB [Concomitant]
     Dosage: UNK, UNK
  3. DRUG THERAPY NOS [Concomitant]
     Dosage: UNK, UNK

REACTIONS (5)
  - INCORRECT DRUG ADMINISTRATION DURATION [None]
  - BACK INJURY [None]
  - LIMB INJURY [None]
  - SENSORY LOSS [None]
  - PAIN [None]
